FAERS Safety Report 9285137 (Version 3)
Quarter: 2013Q2

REPORT INFORMATION
  Report Type: Spontaneous
  Country: JP (occurrence: None)
  Receive Date: 20130507
  Receipt Date: 20130607
  Transmission Date: 20140414
  Serious: Yes (Hospitalization)
  Sender: FDA-Public Use
  Company Number: ENT 2013-0082

PATIENT
  Age: 74 Year
  Sex: Male

DRUGS (4)
  1. ENTACAPONE [Suspect]
     Route: 048
  2. LEVODOPA-BENSERAZIDE HYDROCHLORIDE [Suspect]
     Route: 048
  3. LEVODOPA [Suspect]
     Route: 041
  4. ROPINIROLE (ROPINIROLE) [Suspect]

REACTIONS (14)
  - Oromandibular dystonia [None]
  - Glossoptosis [None]
  - Progressive supranuclear palsy [None]
  - Bradykinesia [None]
  - Parkinsonism [None]
  - Muscle rigidity [None]
  - Tremor [None]
  - Incorrect route of drug administration [None]
  - Overdose [None]
  - Drug effect decreased [None]
  - Cognitive disorder [None]
  - Dyslalia [None]
  - Dysphagia [None]
  - Pneumonia aspiration [None]
